FAERS Safety Report 5930352-2 (Version None)
Quarter: 2008Q4

REPORT INFORMATION
  Report Type: 
  Country: None (occurrence: None)
  Receive Date: 20081023
  Receipt Date: 20081008
  Transmission Date: 20090506
  Serious: Yes (Life-Threatening, Hospitalization)
  Sender: FDA-Public Use
  Company Number: CIP08001987

PATIENT
  Age: 67 Year
  Sex: Male

DRUGS (3)
  1. RISEDRONATE SODIUM [Suspect]
     Indication: OSTEITIS DEFORMANS
     Dosage: 17.5MG ONCE DAILY, ORAL
     Route: 048
     Dates: start: 20080814, end: 20080909
  2. WARFARIN SODIUM [Suspect]
     Indication: CONGESTIVE CARDIOMYOPATHY
  3. ASPIRIN [Concomitant]

REACTIONS (3)
  - BLOOD CALCIUM DECREASED [None]
  - CEREBRAL HAEMORRHAGE [None]
  - CEREBRAL INFARCTION [None]
